FAERS Safety Report 14688409 (Version 1)
Quarter: 2018Q1

REPORT INFORMATION
  Report Type: Report from Study
  Country: BR (occurrence: BR)
  Receive Date: 20180328
  Receipt Date: 20180328
  Transmission Date: 20180509
  Serious: Yes (Other)
  Sender: FDA-Public Use
  Company Number: BR-ROCHE-2092463

PATIENT
  Sex: Female

DRUGS (5)
  1. TAXOTERE [Concomitant]
     Active Substance: DOCETAXEL
     Indication: HER-2 POSITIVE BREAST CANCER
     Route: 065
     Dates: start: 20160615, end: 20161215
  2. PERJETA [Suspect]
     Active Substance: PERTUZUMAB
     Route: 065
     Dates: end: 20171115
  3. PERJETA [Suspect]
     Active Substance: PERTUZUMAB
     Indication: HER-2 POSITIVE BREAST CANCER
     Route: 065
     Dates: start: 20160615
  4. HERCEPTIN [Concomitant]
     Active Substance: TRASTUZUMAB
     Indication: HER-2 POSITIVE BREAST CANCER
     Route: 065
     Dates: start: 20160615
  5. HERCEPTIN [Concomitant]
     Active Substance: TRASTUZUMAB
     Route: 065
     Dates: end: 20180312

REACTIONS (2)
  - Disease progression [Unknown]
  - Drug ineffective [Unknown]
